FAERS Safety Report 19204054 (Version 1)
Quarter: 2021Q2

REPORT INFORMATION
  Report Type: Spontaneous
  Country: SE (occurrence: SE)
  Receive Date: 20210503
  Receipt Date: 20210503
  Transmission Date: 20210717
  Serious: Yes (Hospitalization)
  Sender: FDA-Public Use
  Company Number: SE-ORGANON-O2104SWE002415

PATIENT
  Age: 76 Year
  Sex: Male

DRUGS (6)
  1. STESOLID [Suspect]
     Active Substance: DIAZEPAM
     Dosage: 16 MILLIGRAM, QD
     Dates: start: 20210324, end: 20210324
  2. LOSARTAN POTASSIUM AND HYDROCHLOROTHIAZIDE [Suspect]
     Active Substance: HYDROCHLOROTHIAZIDE\LOSARTAN POTASSIUM
     Dosage: 4 DOSAGE FORM, QD, 50 MG/12.5 MG, TABLETS
     Dates: start: 20210324, end: 20210324
  3. OLANZAPINE. [Suspect]
     Active Substance: OLANZAPINE
     Dosage: 40 MILLIGRAM, ONCE (1 TOTAL), TABLETS
     Dates: start: 20210324, end: 20210324
  4. METFORMIN [Suspect]
     Active Substance: METFORMIN HYDROCHLORIDE
     Dosage: 9000 MILLIGRAM,, QD, TABLETS
     Dates: start: 20210324, end: 20210324
  5. CITALOPRAM [Suspect]
     Active Substance: CITALOPRAM HYDROBROMIDE
     Dosage: 40 MILLIGRAM, QD, TABLETS
     Dates: start: 20210324, end: 20210324
  6. AKINETON [Suspect]
     Active Substance: BIPERIDEN HYDROCHLORIDE
     Dosage: 24 MILLIGRAM, ONCE (1 TOTAL)
     Dates: start: 20210324, end: 20210324

REACTIONS (3)
  - Accidental overdose [Recovered/Resolved]
  - Toxicity to various agents [Recovered/Resolved]
  - Urinary retention [Recovered/Resolved]

NARRATIVE: CASE EVENT DATE: 20210324
